FAERS Safety Report 12811720 (Version 2)
Quarter: 2017Q4

REPORT INFORMATION
  Report Type: Spontaneous
  Country: US (occurrence: US)
  Receive Date: 20161005
  Receipt Date: 20171018
  Transmission Date: 20180320
  Serious: No
  Sender: FDA-Public Use
  Company Number: US-AMGEN-USASP2016117067

PATIENT

DRUGS (5)
  1. VITAMIN K2 [Concomitant]
     Active Substance: MENAQUINONE 6
     Dosage: UNK
  2. BORON W/CALCIUM/MAGNESIUM [Concomitant]
     Dosage: UNK
  3. PROLIA [Suspect]
     Active Substance: DENOSUMAB
     Indication: OSTEOPOROSIS
     Dosage: UNK
     Route: 065
     Dates: start: 2013
  4. VITAMIN D3 [Concomitant]
     Active Substance: CHOLECALCIFEROL
     Dosage: UNK
  5. STRONTIUM RANELATE [Concomitant]
     Active Substance: STRONTIUM RANELATE

REACTIONS (2)
  - Pain [Unknown]
  - Muscle spasms [Unknown]
